FAERS Safety Report 6354007-8 (Version None)
Quarter: 2009Q3

REPORT INFORMATION
  Report Type: 
  Country: None (occurrence: None)
  Receive Date: 20090908
  Receipt Date: 20090827
  Transmission Date: 20100115
  Serious: Yes (Other)
  Sender: FDA-Public Use
  Company Number: JPI-P-002207

PATIENT
  Age: 27 Year
  Sex: Female
  Weight: 77.1115 kg

DRUGS (15)
  1. XYREM [Suspect]
     Indication: CATAPLEXY
     Dosage: SEE IMAGE, ORAL
     Route: 048
     Dates: start: 20070101, end: 20070101
  2. XYREM [Suspect]
     Indication: SOMNOLENCE
     Dosage: SEE IMAGE, ORAL
     Route: 048
     Dates: start: 20070101, end: 20070101
  3. XYREM [Suspect]
     Indication: CATAPLEXY
     Dosage: SEE IMAGE, ORAL
     Route: 048
     Dates: start: 20070101, end: 20070101
  4. XYREM [Suspect]
     Indication: SOMNOLENCE
     Dosage: SEE IMAGE, ORAL
     Route: 048
     Dates: start: 20070101, end: 20070101
  5. XYREM [Suspect]
     Indication: CATAPLEXY
     Dosage: SEE IMAGE, ORAL
     Route: 048
     Dates: start: 20060104
  6. XYREM [Suspect]
     Indication: SOMNOLENCE
     Dosage: SEE IMAGE, ORAL
     Route: 048
     Dates: start: 20060104
  7. XYREM [Suspect]
     Indication: CATAPLEXY
     Dosage: SEE IMAGE, ORAL
     Route: 048
     Dates: start: 20070401
  8. XYREM [Suspect]
     Indication: SOMNOLENCE
     Dosage: SEE IMAGE, ORAL
     Route: 048
     Dates: start: 20070401
  9. XYREM [Suspect]
     Indication: CATAPLEXY
     Dosage: SEE IMAGE, ORAL
     Route: 048
     Dates: start: 20070601
  10. XYREM [Suspect]
     Indication: SOMNOLENCE
     Dosage: SEE IMAGE, ORAL
     Route: 048
     Dates: start: 20070601
  11. XYREM [Suspect]
     Indication: CATAPLEXY
     Dosage: SEE IMAGE, ORAL
     Route: 048
     Dates: start: 20080101
  12. XYREM [Suspect]
     Indication: SOMNOLENCE
     Dosage: SEE IMAGE, ORAL
     Route: 048
     Dates: start: 20080101
  13. TRAMADOL HYDROCHLORIDE [Concomitant]
  14. AMPHETAMINE MIXED SALTS [Concomitant]
  15. MODAFINIL [Concomitant]

REACTIONS (8)
  - DRUG EXPOSURE DURING PREGNANCY [None]
  - DRUG INEFFECTIVE [None]
  - FATIGUE [None]
  - POOR QUALITY SLEEP [None]
  - PREGNANCY [None]
  - SOMNOLENCE [None]
  - WEIGHT DECREASED [None]
  - WEIGHT GAIN POOR [None]
